FAERS Safety Report 13599934 (Version 2)
Quarter: 2017Q2

REPORT INFORMATION
  Report Type: Spontaneous
  Country: US (occurrence: US)
  Receive Date: 20170601
  Receipt Date: 20170601
  Transmission Date: 20170830
  Serious: Yes (Death)
  Sender: FDA-Public Use
  Company Number: US-CIPLA LTD.-2017US09635

PATIENT

DRUGS (18)
  1. NAPROXEN. [Suspect]
     Active Substance: NAPROXEN
     Dosage: UNK
     Route: 048
  2. ACETAMINOPHEN. [Suspect]
     Active Substance: ACETAMINOPHEN
     Dosage: UNK
     Route: 048
  3. ALCOHOL. [Suspect]
     Active Substance: ALCOHOL
     Dosage: UNK
     Route: 048
  4. HYDROCODONE [Suspect]
     Active Substance: HYDROCODONE
     Dosage: UNK
     Route: 048
  5. LOPERAMIDE [Suspect]
     Active Substance: LOPERAMIDE
     Dosage: UNK
     Route: 048
  6. HALOPERIDOL. [Suspect]
     Active Substance: HALOPERIDOL
     Dosage: UNK
     Route: 048
  7. FLUOXETINE [Suspect]
     Active Substance: FLUOXETINE HYDROCHLORIDE
     Dosage: UNK
     Route: 048
  8. ROSUVASTATIN. [Suspect]
     Active Substance: ROSUVASTATIN
     Dosage: UNK
     Route: 048
  9. HYOSCYAMINE. [Suspect]
     Active Substance: HYOSCYAMINE
     Dosage: UNK
     Route: 048
  10. IBUPROFEN. [Suspect]
     Active Substance: IBUPROFEN
     Dosage: UNK
     Route: 048
  11. GUAIFENESIN. [Suspect]
     Active Substance: GUAIFENESIN
     Dosage: UNK
     Route: 048
  12. MONTELUKAST [Suspect]
     Active Substance: MONTELUKAST SODIUM
     Dosage: UNK
     Route: 048
  13. DEXTROMETHORPHAN [Suspect]
     Active Substance: DEXTROMETHORPHAN
     Dosage: UNK
     Route: 048
  14. MAGNESIUM CHLORIDE. [Suspect]
     Active Substance: MAGNESIUM CHLORIDE
     Dosage: UNK
     Route: 048
  15. METHYLPHENIDATE. [Suspect]
     Active Substance: METHYLPHENIDATE
     Dosage: UNK
     Route: 048
  16. PSEUDOEPHEDRINE HYDROCHLORIDE. [Suspect]
     Active Substance: PSEUDOEPHEDRINE HYDROCHLORIDE
     Dosage: UNK
     Route: 048
  17. CITALOPRAM [Suspect]
     Active Substance: CITALOPRAM HYDROBROMIDE
     Dosage: UNK
     Route: 048
  18. PHENOL. [Suspect]
     Active Substance: PHENOL
     Dosage: UNK
     Route: 048

REACTIONS (1)
  - Drug use disorder [Fatal]
